FAERS Safety Report 5804722-7 (Version None)
Quarter: 2008Q3

REPORT INFORMATION
  Report Type: 
  Country: None (occurrence: None)
  Receive Date: 20080709
  Receipt Date: 20080530
  Transmission Date: 20090109
  Serious: Yes (Hospitalization, Other)
  Sender: FDA-Public Use
  Company Number: PHHY2008JP03770

PATIENT
  Sex: Female
  Weight: 53 kg

DRUGS (4)
  1. ZOMETA [Suspect]
     Indication: METASTASES TO BONE
     Dosage: UNK
     Route: 042
     Dates: start: 20060915, end: 20070528
  2. AREDIA [Suspect]
     Indication: METASTASES TO BONE
     Dosage: UNK
     Route: 048
     Dates: start: 20060207, end: 20060901
  3. PREDONINE [Suspect]
     Indication: METASTASES TO CENTRAL NERVOUS SYSTEM
     Dosage: UNK
     Route: 048
     Dates: start: 20060606, end: 20080320
  4. METHOTREXATE [Concomitant]
     Indication: MENINGITIS
     Dosage: UNK
     Dates: end: 20060807

REACTIONS (15)
  - ABSCESS [None]
  - BONE DISORDER [None]
  - BREAST CANCER METASTATIC [None]
  - METASTASES TO BONE [None]
  - METASTASES TO CENTRAL NERVOUS SYSTEM [None]
  - METASTASES TO MENINGES [None]
  - METASTASES TO NERVOUS SYSTEM [None]
  - OSTEITIS [None]
  - OSTEONECROSIS [None]
  - SKIN OPERATION [None]
  - SWELLING [None]
  - TOOTH EXTRACTION [None]
  - TOOTHACHE [None]
  - WOUND DRAINAGE [None]
  - WOUND TREATMENT [None]
